FAERS Safety Report 9798420 (Version 1)
Quarter: 2014Q1

REPORT INFORMATION
  Report Type: Spontaneous
  Country: US (occurrence: US)
  Receive Date: 20140106
  Receipt Date: 20140106
  Transmission Date: 20141002
  Serious: Yes (Death)
  Sender: FDA-Public Use
  Company Number: US-UCBSA-107652

PATIENT
  Age: 27 Year
  Sex: Male

DRUGS (4)
  1. ALPRAZOLAM [Suspect]
     Dosage: ROUTE: UNKNOWN
  2. HEROIN [Suspect]
     Dosage: ROUTE: UNKNOWN
  3. COCAINE [Suspect]
     Dosage: ROUTE: UNKNOWN
  4. AMPHETAMINE [Suspect]
     Dosage: ROUTE: UNKNOWN

REACTIONS (2)
  - Cardio-respiratory arrest [Fatal]
  - Toxicity to various agents [Fatal]
